FAERS Safety Report 4613195-1 (Version None)
Quarter: 2005Q1

REPORT INFORMATION
  Report Type: 
  Country: None (occurrence: None)
  Receive Date: 20050315
  Receipt Date: 20050302
  Transmission Date: 20050727
  Serious: Yes (Hospitalization)
  Sender: FDA-Public Use
  Company Number: 2005040623

PATIENT
  Age: 54 Year
  Sex: Female

DRUGS (3)
  1. CLINDAMYCIN HYDROCHLORIDE [Suspect]
     Indication: PROPHYLAXIS
  2. CEFOZOPRAM (CEFOZOPRAM) [Suspect]
     Indication: PROPHYLAXIS
  3. TEICOPLANIN (TEICOPLANIN) [Concomitant]

REACTIONS (10)
  - ABDOMINAL DISTENSION [None]
  - CLOSTRIDIUM COLITIS [None]
  - DISSEMINATED INTRAVASCULAR COAGULATION [None]
  - GENERAL PHYSICAL HEALTH DETERIORATION [None]
  - INFLAMMATION [None]
  - MEGACOLON [None]
  - POSTOPERATIVE INFECTION [None]
  - SEPTIC SHOCK [None]
  - VOMITING [None]
  - WOUND INFECTION STAPHYLOCOCCAL [None]
